FAERS Safety Report 8349127-2 (Version None)
Quarter: 2012Q2

REPORT INFORMATION
  Report Type: 
  Country: None (occurrence: None)
  Receive Date: 20120510
  Receipt Date: 20120430
  Transmission Date: 20120825
  Serious: Yes (Other)
  Sender: FDA-Public Use
  Company Number: US-SANOFI-AVENTIS-2012SA030339

PATIENT
  Age: 76 Year
  Sex: Male
  Weight: 88.5 kg

DRUGS (1)
  1. PLAVIX [Suspect]
     Route: 048
     Dates: start: 20080101, end: 20120401

REACTIONS (3)
  - PNEUMONIA ASPIRATION [None]
  - FALL [None]
  - MYOPATHY [None]
